FAERS Safety Report 11232227 (Version 6)
Quarter: 2018Q3

REPORT INFORMATION
  Report Type: Spontaneous
  Country: BR (occurrence: BR)
  Receive Date: 20150701
  Receipt Date: 20180918
  Transmission Date: 20181010
  Serious: Yes (Death, Other)
  Sender: FDA-Public Use
  Company Number: BR-PFIZER INC-2015214600

PATIENT
  Age: 58 Year
  Sex: Female
  Weight: 62 kg

DRUGS (8)
  1. SEROQUEL [Suspect]
     Active Substance: QUETIAPINE FUMARATE
     Dosage: UNK
     Route: 065
  2. DIOVAN [Suspect]
     Active Substance: VALSARTAN
     Indication: ANGINA PECTORIS
     Dosage: UNK
     Route: 048
  3. PANTOPRAZOLE [Concomitant]
     Active Substance: PANTOPRAZOLE
     Dosage: UNK
     Route: 065
     Dates: start: 2006
  4. SUSTRATE [Concomitant]
     Active Substance: PROPATYL NITRATE
     Dosage: UNK
     Route: 065
     Dates: start: 2006
  5. DIOVAN [Suspect]
     Active Substance: VALSARTAN
     Dosage: 160 MG, QD
     Route: 048
     Dates: start: 2006
  6. PANTOPRAZOLE [Suspect]
     Active Substance: PANTOPRAZOLE
     Dosage: UNK
     Route: 065
  7. OLCADIL [Suspect]
     Active Substance: CLOXAZOLAM
     Indication: STRESS
     Dosage: 2 MG, BID
     Route: 048
     Dates: start: 2005
  8. DRAMIN B?6 [Concomitant]
     Active Substance: DIMENHYDRINATE\PYRIDOXINE HYDROCHLORIDE
     Dosage: UNK
     Route: 065

REACTIONS (27)
  - Rheumatic fever [Not Recovered/Not Resolved]
  - Emotional disorder [Unknown]
  - Pharyngeal erythema [Unknown]
  - General physical health deterioration [Unknown]
  - Hypersensitivity [Unknown]
  - Infarction [Recovered/Resolved]
  - Dyspnoea [Unknown]
  - Fall [Unknown]
  - Wrong technique in product usage process [Unknown]
  - Blood cholesterol increased [Unknown]
  - Blindness [Not Recovered/Not Resolved]
  - Angina pectoris [Not Recovered/Not Resolved]
  - Hypertension [Not Recovered/Not Resolved]
  - Influenza [Unknown]
  - Anxiety [Not Recovered/Not Resolved]
  - Macular degeneration [Not Recovered/Not Resolved]
  - Nervousness [Unknown]
  - Drug dependence [Unknown]
  - Laryngeal oedema [Unknown]
  - Tendon pain [Unknown]
  - Pharyngitis [Not Recovered/Not Resolved]
  - Death [Fatal]
  - Retinal disorder [Not Recovered/Not Resolved]
  - Myocardial infarction [Not Recovered/Not Resolved]
  - Hepatic steatosis [Not Recovered/Not Resolved]
  - Syncope [Unknown]
  - Diarrhoea [Unknown]

NARRATIVE: CASE EVENT DATE: 2005
